FAERS Safety Report 5709915-5 (Version None)
Quarter: 2008Q2

REPORT INFORMATION
  Report Type: 
  Country: None (occurrence: None)
  Receive Date: 20080418
  Receipt Date: 20070530
  Transmission Date: 20081010
  Serious: No
  Sender: FDA-Public Use
  Company Number: US-ASTRAZENECA-2007UW13255

PATIENT

DRUGS (3)
  1. TOPROL-XL [Suspect]
     Route: 048
  2. METHOTREXATE [Concomitant]
  3. REMICADE [Concomitant]

REACTIONS (1)
  - DRUG SCREEN POSITIVE [None]
